FAERS Safety Report 9953214 (Version 1)
Quarter: 2014Q1

REPORT INFORMATION
  Report Type: Report from Study
  Country: US (occurrence: US)
  Receive Date: 20140304
  Receipt Date: 20140304
  Transmission Date: 20141002
  Serious: No
  Sender: FDA-Public Use
  Company Number: US-ABBVIE-13P-163-1077029-00

PATIENT
  Age: 44 Year
  Sex: Female
  Weight: 113.5 kg

DRUGS (5)
  1. HUMIRA [Suspect]
     Indication: PSORIASIS
     Route: 058
     Dates: start: 20130319, end: 20130319
  2. HUMIRA [Suspect]
     Route: 058
     Dates: start: 20130326
  3. WELLBUTRIN [Concomitant]
     Indication: DEPRESSION
  4. PRILOSEC [Concomitant]
     Indication: GASTROOESOPHAGEAL REFLUX DISEASE
  5. PROPRANOLOL [Concomitant]
     Indication: MIGRAINE

REACTIONS (1)
  - Local swelling [Not Recovered/Not Resolved]
